FAERS Safety Report 18644192 (Version 1)
Quarter: 2020Q4

REPORT INFORMATION
  Report Type: Spontaneous
  Country: US (occurrence: US)
  Receive Date: 20201221
  Receipt Date: 20201221
  Transmission Date: 20210114
  Serious: Yes (Other)
  Sender: FDA-Public Use
  Company Number: US-PURDUE-USA-2020-0180254

PATIENT
  Sex: Female

DRUGS (2)
  1. HYDROMORPHONE TABLET (RHODES) [Suspect]
     Active Substance: HYDROMORPHONE
     Indication: PRODUCT USED FOR UNKNOWN INDICATION
     Route: 048
  2. DILAUDID [Suspect]
     Active Substance: HYDROMORPHONE HYDROCHLORIDE
     Indication: PRODUCT USED FOR UNKNOWN INDICATION
     Route: 048

REACTIONS (22)
  - Disturbance in attention [Unknown]
  - Gingival disorder [Unknown]
  - Muscle spasms [Unknown]
  - Restless legs syndrome [Unknown]
  - Fatigue [Unknown]
  - Myalgia [Unknown]
  - Hyperhidrosis [Unknown]
  - Anxiety [Unknown]
  - Mood swings [Unknown]
  - Abdominal pain [Unknown]
  - Diarrhoea [Unknown]
  - Heart rate increased [Unknown]
  - Psychomotor hyperactivity [Unknown]
  - Bone loss [Unknown]
  - Pain [Unknown]
  - Alexithymia [Unknown]
  - Aphasia [Unknown]
  - Muscle discomfort [Unknown]
  - Constipation [Unknown]
  - Dependence [Unknown]
  - Angina pectoris [Unknown]
  - Insomnia [Unknown]
